FAERS Safety Report 4347896-X (Version None)
Quarter: 2004Q2

REPORT INFORMATION
  Report Type: 
  Country: None (occurrence: None)
  Receive Date: 20040422
  Receipt Date: 20040406
  Transmission Date: 20050107
  Serious: Yes (Other)
  Sender: FDA-Public Use
  Company Number: USA040362290

PATIENT
  Age: 72 Year
  Sex: Female

DRUGS (2)
  1. EVISTA [Suspect]
     Indication: OSTEOPOROSIS
  2. HORMONE REPALCEMENT THERAPY [Concomitant]

REACTIONS (1)
  - SPINAL COMPRESSION FRACTURE [None]
